FAERS Safety Report 9738778 (Version 1)
Quarter: 2013Q4

REPORT INFORMATION
  Report Type: Spontaneous
  Country: FR (occurrence: FR)
  Receive Date: 20131209
  Receipt Date: 20131209
  Transmission Date: 20140711
  Serious: Yes (Hospitalization)
  Sender: FDA-Public Use
  Company Number: FR-JNJFOC-20131201686

PATIENT
  Age: 32 Year
  Sex: Male

DRUGS (9)
  1. REMICADE [Suspect]
     Indication: ANKYLOSING SPONDYLITIS
     Dosage: 19TH INFUSION
     Route: 042
     Dates: start: 20130717
  2. REMICADE [Suspect]
     Indication: ANKYLOSING SPONDYLITIS
     Dosage: 18TH INFUSION
     Route: 042
     Dates: start: 20130530
  3. REMICADE [Suspect]
     Indication: ANKYLOSING SPONDYLITIS
     Route: 042
  4. REMICADE [Suspect]
     Indication: ANKYLOSING SPONDYLITIS
     Dosage: 16TH INFUSION
     Route: 042
     Dates: start: 20130304
  5. REMICADE [Suspect]
     Indication: ANKYLOSING SPONDYLITIS
     Dosage: 14TH INFUSION
     Route: 042
     Dates: start: 20121115
  6. REMICADE [Suspect]
     Indication: ANKYLOSING SPONDYLITIS
     Route: 042
     Dates: start: 20130905
  7. REMICADE [Suspect]
     Indication: ANKYLOSING SPONDYLITIS
     Dosage: 17TH INFUSION
     Route: 042
     Dates: start: 20130416
  8. ATARAX [Concomitant]
     Indication: PREMEDICATION
     Route: 065
     Dates: start: 20130905
  9. POLARAMIN [Concomitant]
     Indication: PREMEDICATION
     Route: 065
     Dates: start: 20130905

REACTIONS (8)
  - Laryngeal discomfort [Recovering/Resolving]
  - Erythema [Recovering/Resolving]
  - Cough [Recovering/Resolving]
  - Malaise [Recovering/Resolving]
  - Vomiting [Recovering/Resolving]
  - Infusion related reaction [Recovering/Resolving]
  - Hyperhidrosis [Recovering/Resolving]
  - Dyspnoea [Recovering/Resolving]
